FAERS Safety Report 21297034 (Version 2)
Quarter: 2022Q4

REPORT INFORMATION
  Report Type: Spontaneous
  Country: NL (occurrence: NL)
  Receive Date: 20220906
  Receipt Date: 20221020
  Transmission Date: 20230112
  Serious: Yes (Life-Threatening)
  Sender: FDA-Public Use
  Company Number: None

PATIENT
  Sex: Male
  Weight: 83 kg

DRUGS (2)
  1. VALPROIC ACID [Suspect]
     Active Substance: VALPROIC ACID
     Indication: Epilepsy
     Dosage: 1000 MILLIGRAM DAILY; 2X PER DAY, VALPROINEZUUR TABLET MSR 500MG / BRAND NAME NOT SPECIFIED, DURATIO
     Dates: start: 20220801, end: 20220819
  2. RYZODEG 70/30 [Concomitant]
     Active Substance: INSULIN ASPART\INSULIN DEGLUDEC
     Indication: Product used for unknown indication
     Dosage: INSULIN DEGLUDEC/ASPART INJVLST 70/30E/ML / RYZODEG FLEXTOUCH INJVLST 100E/ML PEN 3ML, THERAPY START

REACTIONS (4)
  - Hypoglycaemia [Not Recovered/Not Resolved]
  - Aphasia [Unknown]
  - Gait disturbance [Unknown]
  - Visual impairment [Unknown]
